FAERS Safety Report 10149265 (Version 1)
Quarter: 2014Q2

REPORT INFORMATION
  Report Type: Spontaneous
  Country: CA (occurrence: CA)
  Receive Date: 20140502
  Receipt Date: 20140502
  Transmission Date: 20141212
  Serious: Yes (Hospitalization)
  Sender: FDA-Public Use
  Company Number: CA-MERCK-1405CAN000079

PATIENT
  Age: 60 Year
  Sex: Male
  Weight: 102.4 kg

DRUGS (13)
  1. JANUVIA [Suspect]
     Dosage: 100 MG, 1 EVERY 1 DAY(QD)
     Route: 048
  2. ATROVENT [Concomitant]
     Dosage: UNK
     Route: 065
  3. BISOPROLOL [Concomitant]
     Dosage: UNK
     Route: 048
  4. CRESTOR [Concomitant]
     Dosage: UNK
     Route: 048
  5. CYMBALTA [Concomitant]
     Dosage: UNK
     Route: 048
  6. DIAMICRON [Concomitant]
     Dosage: UNK
     Route: 048
  7. GABAPENTIN [Concomitant]
     Dosage: UNK
     Route: 048
  8. HYDROMORPHONE [Concomitant]
     Dosage: UNK
     Route: 065
  9. LACTULOSE [Concomitant]
     Dosage: UNK
     Route: 048
  10. LANTUS [Concomitant]
     Dosage: UNK
     Route: 058
  11. NAPROXEN [Concomitant]
     Dosage: UNK
     Route: 065
  12. RAMIPRIL [Concomitant]
     Dosage: UNK
     Route: 065
  13. TECTA [Concomitant]
     Dosage: UNK, ENTERIC-COATED TABLETS
     Route: 048

REACTIONS (2)
  - Pancreatic cyst [Unknown]
  - Pancreatitis [Unknown]
